FAERS Safety Report 8017860-8 (Version None)
Quarter: 2012Q1

REPORT INFORMATION
  Report Type: 
  Country: None (occurrence: None)
  Receive Date: 20120103
  Receipt Date: 20111226
  Transmission Date: 20120608
  Serious: No
  Sender: FDA-Public Use
  Company Number: US-PFIZER INC-2011300661

PATIENT
  Sex: Female

DRUGS (2)
  1. SYNTHROID [Suspect]
     Indication: AUTOIMMUNE THYROIDITIS
     Dosage: 50 UG, UNK
     Route: 048
     Dates: start: 20110818, end: 20111013
  2. LEVOXYL [Suspect]
     Indication: HYPOTHYROIDISM
     Dosage: 50 UG,DAILY
     Route: 048
     Dates: start: 20111001, end: 20111001

REACTIONS (5)
  - ABDOMINAL PAIN [None]
  - ABDOMINAL DISTENSION [None]
  - ABDOMINAL DISCOMFORT [None]
  - THIRST [None]
  - DYSGEUSIA [None]
